FAERS Safety Report 20184572 (Version 1)
Quarter: 2021Q4

REPORT INFORMATION
  Report Type: Spontaneous
  Country: US (occurrence: US)
  Receive Date: 20211214
  Receipt Date: 20211214
  Transmission Date: 20220303
  Serious: Yes (Other)
  Sender: FDA-Public Use
  Company Number: US-REGENERON PHARMACEUTICALS, INC.-2021-17987

PATIENT

DRUGS (5)
  1. EYLEA [Suspect]
     Active Substance: AFLIBERCEPT
     Indication: Neovascular age-related macular degeneration
     Dosage: UNK, MONTHLY
     Route: 031
     Dates: start: 2019
  2. EYLEA [Suspect]
     Active Substance: AFLIBERCEPT
     Dosage: EVERY 6 WEEKS (Q6W) IN LEFT EYE
     Route: 031
  3. EYLEA [Suspect]
     Active Substance: AFLIBERCEPT
     Dosage: EVERY8 WEEKS (Q8W) IN LEFT EYE
     Route: 031
     Dates: start: 20210129, end: 20210129
  4. EYLEA [Suspect]
     Active Substance: AFLIBERCEPT
     Dosage: BOTH EYES
     Route: 031
  5. AVASTIN [Suspect]
     Active Substance: BEVACIZUMAB
     Indication: Neovascular age-related macular degeneration
     Dosage: RIGHT EYE
     Dates: start: 20210129

REACTIONS (3)
  - Cataract [Unknown]
  - Eye disorder [Unknown]
  - Vitreous floaters [Unknown]
